FAERS Safety Report 5862877-2 (Version None)
Quarter: 2008Q4

REPORT INFORMATION
  Report Type: 
  Country: None (occurrence: None)
  Receive Date: 20080828
  Receipt Date: 20080822
  Transmission Date: 20090506
  Serious: Yes (Hospitalization)
  Sender: FDA-Public Use
  Company Number: A0731242A

PATIENT
  Age: 66 Year
  Sex: Female
  Weight: 72.7 kg

DRUGS (9)
  1. AVANDIA [Suspect]
     Indication: TYPE 2 DIABETES MELLITUS
     Dosage: 4MG TWICE PER DAY
     Route: 048
     Dates: start: 20030807, end: 20080201
  2. ESTRADIOL [Concomitant]
  3. REGULAR INSULIN [Concomitant]
     Dates: start: 19840101
  4. LANTUS [Concomitant]
     Dates: start: 20030101
  5. MECLIZINE [Concomitant]
  6. ZAFIRLUKAST [Concomitant]
  7. CALCIUM + D [Concomitant]
  8. METOCLOPRAMIDE [Concomitant]
  9. TERAZOSIN HCL [Concomitant]

REACTIONS (6)
  - CARDIOVASCULAR DISORDER [None]
  - CEREBROVASCULAR ACCIDENT [None]
  - CHEST PAIN [None]
  - INJURY [None]
  - PAIN [None]
  - TRANSIENT ISCHAEMIC ATTACK [None]
